FAERS Safety Report 17514686 (Version 1)
Quarter: 2020Q1

REPORT INFORMATION
  Report Type: Spontaneous
  Country: US (occurrence: US)
  Receive Date: 20200309
  Receipt Date: 20200309
  Transmission Date: 20200409
  Serious: No
  Sender: FDA-Public Use
  Company Number: US-GLAXOSMITHKLINE-US2020036837

PATIENT
  Age: 65 Year
  Sex: Female

DRUGS (2)
  1. BREO ELLIPTA [Suspect]
     Active Substance: FLUTICASONE FUROATE\VILANTEROL TRIFENATATE
     Indication: PRODUCT USED FOR UNKNOWN INDICATION
     Dosage: 1 PUFF(S), BID
     Route: 065
     Dates: start: 201901
  2. VENTOLIN HFA [Suspect]
     Active Substance: ALBUTEROL SULFATE
     Indication: PRODUCT USED FOR UNKNOWN INDICATION
     Dosage: 1 PUFF(S), PRN (AS NEEDED, USUALLY LESS THAN 3 TIMES PER WEEK)
     Route: 065

REACTIONS (9)
  - Blood pressure increased [Unknown]
  - Cardiomegaly [Unknown]
  - Drug ineffective [Unknown]
  - Wheezing [Unknown]
  - Nasal congestion [Unknown]
  - Lymphocyte count increased [Unknown]
  - Chest discomfort [Unknown]
  - Headache [Unknown]
  - Blood immunoglobulin M decreased [Unknown]

NARRATIVE: CASE EVENT DATE: 202002
